FAERS Safety Report 9460291 (Version 1)
Quarter: 2013Q3

REPORT INFORMATION
  Report Type: Spontaneous
  Country: US (occurrence: US)
  Receive Date: 20130815
  Receipt Date: 20130815
  Transmission Date: 20140515
  Serious: Yes (Other)
  Sender: FDA-Public Use
  Company Number: US-BAXTER-2013BAX018252

PATIENT
  Age: 1 Year
  Sex: Male

DRUGS (3)
  1. ADVATE [Suspect]
     Indication: HAEMOPHILIA
     Dates: start: 20121017
  2. ADVATE [Suspect]
     Indication: IMMUNE TOLERANCE INDUCTION
     Route: 040
     Dates: start: 20130416
  3. ADVATE [Suspect]
     Dates: start: 20130429

REACTIONS (1)
  - Anti factor VIII antibody test [Recovered/Resolved]
